FAERS Safety Report 10432410 (Version 1)
Quarter: 2014Q3

REPORT INFORMATION
  Report Type: Spontaneous
  Country: US (occurrence: None)
  Receive Date: 20140815
  Receipt Date: 20140815
  Transmission Date: 20150326
  Serious: No
  Sender: FDA-Public Use
  Company Number: A-US2014-102231

PATIENT
  Age: 63 Year
  Sex: Female

DRUGS (12)
  1. ALIGN (BIFIDOBACTERIUM INFANTIS) [Concomitant]
  2. LEVEMIR (INSULIN DETERMIR) [Concomitant]
  3. LOSARTAN [Concomitant]
     Active Substance: LOSARTAN
  4. SILDENAFIL [Concomitant]
     Active Substance: SILDENAFIL
  5. KLOR-CON (POTASSIUM CHLORIDE) [Concomitant]
  6. GLUMETZA [Concomitant]
     Active Substance: METFORMIN HYDROCHLORIDE
  7. OPSUMIT [Suspect]
     Active Substance: MACITENTAN
     Indication: PULMONARY ARTERIAL HYPERTENSION
     Route: 048
     Dates: start: 20140610
  8. CARTIA XT (DILTIAZEM HYDROCHLORIDE) [Concomitant]
     Active Substance: DILTIAZEM HYDROCHLORIDE
  9. FUROSEMIDE. [Concomitant]
     Active Substance: FUROSEMIDE
  10. PROTONIX [Concomitant]
     Active Substance: PANTOPRAZOLE SODIUM
  11. SYNTHROID [Concomitant]
     Active Substance: LEVOTHYROXINE SODIUM
  12. AZATHIOPRINE. [Concomitant]
     Active Substance: AZATHIOPRINE

REACTIONS (1)
  - No therapeutic response [None]

NARRATIVE: CASE EVENT DATE: 20140714
